FAERS Safety Report 5945803-7 (Version None)
Quarter: 2008Q4

REPORT INFORMATION
  Report Type: 
  Country: None (occurrence: None)
  Receive Date: 20081106
  Receipt Date: 20081025
  Transmission Date: 20090506
  Serious: Yes (Other)
  Sender: FDA-Public Use
  Company Number: CHPA2008US18634

PATIENT
  Age: 9 Year
  Sex: Male

DRUGS (2)
  1. TRIAMINIC-D MULTISYMPTOM COLD (NCH) (CHLORPHENIRAMINE MALEATE, DEXTROM [Suspect]
     Indication: COUGH
     Dosage: 2 TSP, BID, ORAL
     Route: 048
     Dates: start: 20081022
  2. TRIAMINIC-D MULTISYMPTOM COLD (NCH) (CHLORPHENIRAMINE MALEATE, DEXTROM [Suspect]
     Indication: SINUS CONGESTION
     Dosage: 2 TSP, BID, ORAL
     Route: 048
     Dates: start: 20081022

REACTIONS (3)
  - BLOOD GLUCOSE INCREASED [None]
  - CONCOMITANT DISEASE AGGRAVATED [None]
  - MALAISE [None]
